FAERS Safety Report 6725981-2 (Version None)
Quarter: 2010Q2

REPORT INFORMATION
  Report Type: 
  Country: None (occurrence: None)
  Receive Date: 20100514
  Receipt Date: 20100506
  Transmission Date: 20101027
  Serious: Yes (Other)
  Sender: FDA-Public Use
  Company Number: US-PFIZER INC-2010058023

PATIENT
  Sex: Male
  Weight: 77 kg

DRUGS (6)
  1. LIPITOR [Suspect]
     Indication: BLOOD CHOLESTEROL INCREASED
     Dosage: 20 MG, DAILY
     Route: 048
     Dates: end: 20100101
  2. REGULAR INSULIN [Concomitant]
     Indication: DIABETES MELLITUS
     Dosage: 15 UNITS IN THE MORNING, 8 UNITS IN THE EVENING
  3. NPH INSULIN [Concomitant]
     Indication: DIABETES MELLITUS
     Dosage: 21 TO 23 UNITS IN THE MORNING, 14 UNITS IN THE EVENING
  4. ACETYLSALICYLIC ACID [Concomitant]
     Indication: CARDIOVASCULAR EVENT PROPHYLAXIS
     Dosage: 81 MG, DAILY
     Route: 048
     Dates: start: 19800101
  5. VITAMIN B COMPLEX CAP [Concomitant]
     Indication: DIABETIC NEUROPATHY
     Dosage: DAILY IN THE MORNING
  6. LUMIGAN [Concomitant]
     Indication: SWELLING
     Dosage: UNK
     Route: 047

REACTIONS (2)
  - CATARACT OPERATION [None]
  - INCREASED TENDENCY TO BRUISE [None]
